FAERS Safety Report 20709485 (Version 3)
Quarter: 2022Q2

REPORT INFORMATION
  Report Type: Spontaneous
  Country: None (occurrence: US)
  Receive Date: 20220414
  Receipt Date: 20220530
  Transmission Date: 20220721
  Serious: No
  Sender: FDA-Public Use
  Company Number: US-FDC LIMITED-2127755

PATIENT
  Sex: Female

DRUGS (1)
  1. CIPROFLOXACIN [Suspect]
     Active Substance: CIPROFLOXACIN
     Indication: Eye injury
     Route: 047
     Dates: start: 20220331, end: 20220401

REACTIONS (10)
  - Liquid product physical issue [Unknown]
  - Condition aggravated [Unknown]
  - Discomfort [Unknown]
  - Inflammation [Unknown]
  - Eyelid margin crusting [Unknown]
  - Eye discharge [Unknown]
  - Eye pain [Unknown]
  - Eyelid disorder [Unknown]
  - Skin burning sensation [Unknown]
  - Ocular hyperaemia [Unknown]

NARRATIVE: CASE EVENT DATE: 20220331
